FAERS Safety Report 10240294 (Version 3)
Quarter: 2014Q3

REPORT INFORMATION
  Report Type: Spontaneous
  Country: US (occurrence: US)
  Receive Date: 20140617
  Receipt Date: 20140715
  Transmission Date: 20150326
  Serious: Yes (Other)
  Sender: FDA-Public Use
  Company Number: PHEH2014US011680

PATIENT
  Sex: Male

DRUGS (9)
  1. FAMCICLOVIR. [Suspect]
     Active Substance: FAMCICLOVIR
     Indication: HERPES ZOSTER
     Dosage: 250 MG, UNK
  2. FAMVIR [Suspect]
     Active Substance: FAMCICLOVIR
     Indication: ERYTHEMA INFECTIOSUM
  3. ZOCOR [Concomitant]
     Active Substance: SIMVASTATIN
  4. NAPROXEN. [Concomitant]
     Active Substance: NAPROXEN
     Indication: PAIN
  5. FAMVIR [Suspect]
     Active Substance: FAMCICLOVIR
     Indication: HERPES ZOSTER
     Dosage: 125 MG, UNK
     Dates: start: 2003
  6. TRICOR [Concomitant]
     Active Substance: FENOFIBRATE
  7. ZOLOFT [Concomitant]
     Active Substance: SERTRALINE HYDROCHLORIDE
  8. ATENOLOL. [Concomitant]
     Active Substance: ATENOLOL
  9. ELAVIL [Concomitant]
     Active Substance: AMITRIPTYLINE HYDROCHLORIDE
     Indication: PAIN

REACTIONS (4)
  - Post herpetic neuralgia [Unknown]
  - Herpes zoster [Unknown]
  - Drug ineffective [Unknown]
  - Feeling abnormal [Unknown]
